FAERS Safety Report 5862081-8 (Version None)
Quarter: 2008Q3

REPORT INFORMATION
  Report Type: 
  Country: None (occurrence: None)
  Receive Date: 20080827
  Receipt Date: 20080827
  Transmission Date: 20090109
  Serious: Yes (Other)
  Sender: FDA-Public Use
  Company Number: None

PATIENT
  Age: 71 Year
  Sex: Male
  Weight: 63.05 kg

DRUGS (1)
  1. REMERON [Suspect]
     Indication: DEPRESSION
     Dosage: 15MG AT BEDTIME
     Dates: start: 20080808

REACTIONS (8)
  - AGITATION [None]
  - ASTHENIA [None]
  - DEPRESSION [None]
  - DRY SKIN [None]
  - EYE PAIN [None]
  - INSOMNIA [None]
  - PHOTOSENSITIVITY REACTION [None]
  - RESTLESSNESS [None]
